FAERS Safety Report 21903201 (Version 1)
Quarter: 2023Q1

REPORT INFORMATION
  Report Type: Spontaneous
  Country: US (occurrence: US)
  Receive Date: 20230124
  Receipt Date: 20230124
  Transmission Date: 20230418
  Serious: No
  Sender: FDA-Public Use
  Company Number: US-ELI_LILLY_AND_COMPANY-US202301009519

PATIENT

DRUGS (1)
  1. TRULICITY [Suspect]
     Active Substance: DULAGLUTIDE
     Indication: Type 2 diabetes mellitus
     Dosage: 4.5 MG, OTHER (TWO DOSE ONCE A WEEK)
     Route: 065
     Dates: start: 20230118, end: 20230118

REACTIONS (2)
  - Inappropriate schedule of product administration [Unknown]
  - Overdose [Unknown]
